FAERS Safety Report 19747823 (Version 1)
Quarter: 2021Q3

REPORT INFORMATION
  Report Type: Spontaneous
  Country: US (occurrence: US)
  Receive Date: 20210823
  Receipt Date: 20210823
  Transmission Date: 20211014
  Serious: Yes (Hospitalization)
  Sender: FDA-Public Use
  Company Number: None

PATIENT
  Age: 63 Year
  Sex: Female

DRUGS (1)
  1. VERZENIO [Suspect]
     Active Substance: ABEMACICLIB
     Indication: BREAST CANCER
     Route: 048
     Dates: start: 201910

REACTIONS (6)
  - Therapy interrupted [None]
  - Dysarthria [None]
  - Hypoaesthesia [None]
  - Amnesia [None]
  - Malaise [None]
  - Headache [None]

NARRATIVE: CASE EVENT DATE: 202106
